FAERS Safety Report 4896325-6 (Version None)
Quarter: 2006Q1

REPORT INFORMATION
  Report Type: 
  Country: None (occurrence: None)
  Receive Date: 20060126
  Receipt Date: 20051227
  Transmission Date: 20060701
  Serious: Yes (Hospitalization)
  Sender: FDA-Public Use
  Company Number: 2005BI022650

PATIENT
  Age: 54 Year
  Sex: Female
  Weight: 112.9457 kg

DRUGS (3)
  1. AVONEX [Suspect]
     Dosage: 30 UG, QW; IM
     Route: 030
     Dates: start: 19960101, end: 20030101
  2. AVONEX [Suspect]
     Indication: MULTIPLE SCLEROSIS
     Dosage: 30 UG, QW; IM
     Route: 030
     Dates: start: 20030101
  3. COUMADIN [Concomitant]

REACTIONS (4)
  - FALL [None]
  - HIP FRACTURE [None]
  - MOVEMENT DISORDER [None]
  - POSTOPERATIVE WOUND INFECTION [None]
